FAERS Safety Report 15787026 (Version 18)
Quarter: 2022Q3

REPORT INFORMATION
  Report Type: Report from Study
  Country: CA (occurrence: CA)
  Receive Date: 20190103
  Receipt Date: 20220909
  Transmission Date: 20221027
  Serious: Yes (Hospitalization, Other)
  Sender: FDA-Public Use
  Company Number: CA-TAKEDA-2019TUS000046

PATIENT
  Age: 47 Year
  Sex: Male

DRUGS (9)
  1. VEDOLIZUMAB [Suspect]
     Active Substance: VEDOLIZUMAB
     Indication: Colitis ulcerative
     Dosage: 300 MILLIGRAM
     Route: 042
     Dates: start: 20180612
  2. VEDOLIZUMAB [Suspect]
     Active Substance: VEDOLIZUMAB
     Dosage: 300 MILLIGRAM
     Route: 042
  3. VEDOLIZUMAB [Suspect]
     Active Substance: VEDOLIZUMAB
     Dosage: 300 MILLIGRAM
     Route: 042
  4. VEDOLIZUMAB [Suspect]
     Active Substance: VEDOLIZUMAB
     Dosage: 300 MILLIGRAM
     Route: 042
  5. VEDOLIZUMAB [Suspect]
     Active Substance: VEDOLIZUMAB
     Dosage: 300 MILLIGRAM
     Route: 042
  6. VEDOLIZUMAB [Suspect]
     Active Substance: VEDOLIZUMAB
     Dosage: 300 MILLIGRAM
     Route: 042
  7. VEDOLIZUMAB [Suspect]
     Active Substance: VEDOLIZUMAB
     Dosage: 300 MILLIGRAM
     Route: 042
  8. VEDOLIZUMAB [Suspect]
     Active Substance: VEDOLIZUMAB
     Dosage: 300 MILLIGRAM, Q4WEEKS
     Route: 042
     Dates: start: 20220907
  9. Salofalk [Concomitant]
     Dosage: UNK

REACTIONS (15)
  - Diverticulitis [Unknown]
  - Anal abscess [Unknown]
  - Haematochezia [Unknown]
  - Renal failure [Unknown]
  - Anal fistula [Unknown]
  - Colitis ulcerative [Unknown]
  - Abdominal pain [Unknown]
  - Abdominal pain lower [Unknown]
  - Genital erythema [Unknown]
  - Genital swelling [Unknown]
  - Blood test abnormal [Unknown]
  - Medical device site discharge [Unknown]
  - Urinary tract infection [Recovering/Resolving]
  - Hypertension [Unknown]
  - Off label use [Unknown]

NARRATIVE: CASE EVENT DATE: 20181221
